FAERS Safety Report 17919482 (Version 3)
Quarter: 2020Q3

REPORT INFORMATION
  Report Type: Spontaneous
  Country: DE (occurrence: DE)
  Receive Date: 20200620
  Receipt Date: 20200828
  Transmission Date: 20201103
  Serious: Yes (Hospitalization, Other)
  Sender: FDA-Public Use
  Company Number: DE-AUROBINDO-AUR-APL-2020-029562

PATIENT
  Age: 66 Year
  Sex: Female
  Weight: 88 kg

DRUGS (17)
  1. TORASEMIDE [Concomitant]
     Active Substance: TORSEMIDE
     Dosage: 5 OT, ONCE A DAY (MORNING)
     Route: 065
     Dates: start: 201205
  2. VALSARTAN. [Suspect]
     Active Substance: VALSARTAN
     Indication: HYPERTENSION
     Dosage: 160 MILLIGRAM, ONCE A DAY
     Route: 065
  3. EXFORGE [Suspect]
     Active Substance: AMLODIPINE BESYLATE\VALSARTAN
     Indication: PRODUCT USED FOR UNKNOWN INDICATION
     Dosage: 1 DOSAGE FORM (160/10)
     Route: 065
     Dates: start: 2012
  4. TORASEMIDE [Concomitant]
     Active Substance: TORSEMIDE
     Indication: PRODUCT USED FOR UNKNOWN INDICATION
     Dosage: 10 OT, ONCE A DAY (MORNING)
     Route: 065
     Dates: start: 2012
  5. CARVEDILOL. [Concomitant]
     Active Substance: CARVEDILOL
     Indication: HYPERTENSION
     Dosage: UNK, ONCE A DAY, 12.5 OT, QD (EVENING)
     Route: 048
     Dates: end: 2013
  6. AMLODIPINE [Suspect]
     Active Substance: AMLODIPINE BESYLATE
     Indication: PRODUCT USED FOR UNKNOWN INDICATION
     Dosage: UNK
     Route: 065
  7. VALSARTAN. [Suspect]
     Active Substance: VALSARTAN
     Dosage: 160 MILLIGRAM
     Route: 065
     Dates: start: 201205, end: 20120613
  8. VALSARTAN. [Suspect]
     Active Substance: VALSARTAN
     Dosage: 160 MILLIGRAM, TWO TIMES A DAY
     Route: 065
     Dates: start: 20120614, end: 2013
  9. VALSARTAN. [Suspect]
     Active Substance: VALSARTAN
     Dosage: 160 MILLIGRAM, ONCE A DAY
     Route: 065
     Dates: start: 2013
  10. VALSARTAN. [Suspect]
     Active Substance: VALSARTAN
     Dosage: 80 MILLIGRAM, ONCE A DAY
     Route: 065
     Dates: start: 2013
  11. VALSARTAN. [Suspect]
     Active Substance: VALSARTAN
     Dosage: 160 MILLIGRAM, ONCE A DAY
     Route: 065
     Dates: start: 2013
  12. PROCORALAN [Concomitant]
     Active Substance: IVABRADINE
     Indication: PRODUCT USED FOR UNKNOWN INDICATION
     Dosage: 5 MILLIGRAM, TWO TIMES A DAY (MORNING AND EVENING)
     Route: 065
     Dates: start: 2013
  13. VALSARTAN. [Suspect]
     Active Substance: VALSARTAN
     Dosage: 160 MILLIGRAM, ONCE A DAY
     Route: 065
     Dates: start: 2014
  14. TORASEMIDE [Concomitant]
     Active Substance: TORSEMIDE
     Dosage: 5 OT, ONCE A DAY (MORNING)
     Route: 065
     Dates: start: 2013
  15. CARVEDILOL. [Concomitant]
     Active Substance: CARVEDILOL
     Dosage: 12.5 MILLIGRAM, TWO TIMES A DAY 25 OT, QD (MORNING)
     Route: 048
     Dates: end: 20130311
  16. SIMVASTATIN. [Concomitant]
     Active Substance: SIMVASTATIN
     Indication: HYPERLIPIDAEMIA
     Dosage: 40 MILLIGRAM, ONCE A DAY (EVENING)
     Route: 048
  17. PANTOZOL [Concomitant]
     Active Substance: PANTOPRAZOLE SODIUM
     Indication: PRODUCT USED FOR UNKNOWN INDICATION
     Dosage: 40 MILLIGRAM, ONCE A DAY (MORNING)
     Route: 065

REACTIONS (21)
  - Blood pressure diastolic abnormal [Unknown]
  - Psoriasis [Unknown]
  - Feeling abnormal [Recovered/Resolved]
  - Nausea [Unknown]
  - Gait inability [Unknown]
  - Disability [Unknown]
  - Renal failure [Unknown]
  - Ureteric obstruction [Unknown]
  - Decreased appetite [Unknown]
  - Type 2 diabetes mellitus [Unknown]
  - Vena cava injury [Unknown]
  - Cervix carcinoma [Unknown]
  - Renal impairment [Unknown]
  - Squamous cell carcinoma of the cervix [Unknown]
  - Oedema peripheral [Recovered/Resolved]
  - Creatinine renal clearance decreased [Unknown]
  - Vaginal haemorrhage [Unknown]
  - Body mass index increased [Unknown]
  - Neovaginal stenosis [Unknown]
  - Blood pressure increased [Unknown]
  - Diastolic dysfunction [Unknown]

NARRATIVE: CASE EVENT DATE: 201112
